FAERS Safety Report 13610934 (Version 1)
Quarter: 2017Q2

REPORT INFORMATION
  Report Type: Spontaneous
  Country: US (occurrence: US)
  Receive Date: 20170605
  Receipt Date: 20170605
  Transmission Date: 20170830
  Serious: Yes (Death, Life-Threatening, Disabling, Other)
  Sender: FDA-Public Use
  Company Number: None

PATIENT
  Age: 37 Year
  Sex: Male
  Weight: 77.63 kg

DRUGS (1)
  1. PROPECIA [Suspect]
     Active Substance: FINASTERIDE
     Indication: ANDROGENETIC ALOPECIA
     Route: 048
     Dates: start: 20130509, end: 20170517

REACTIONS (16)
  - Muscle spasms [None]
  - Flushing [None]
  - Erectile dysfunction [None]
  - Libido decreased [None]
  - Muscle atrophy [None]
  - Feeling abnormal [None]
  - Discomfort [None]
  - Penis disorder [None]
  - Asphyxia [None]
  - Dizziness [None]
  - Depression [None]
  - Testicular pain [None]
  - Completed suicide [None]
  - Insomnia [None]
  - Hypogonadism [None]
  - Fatigue [None]

NARRATIVE: CASE EVENT DATE: 20140412
